FAERS Safety Report 17680311 (Version 1)
Quarter: 2020Q2

REPORT INFORMATION
  Report Type: Spontaneous
  Country: US (occurrence: US)
  Receive Date: 20200417
  Receipt Date: 20200417
  Transmission Date: 20200714
  Serious: Yes (Death)
  Sender: FDA-Public Use
  Company Number: None

PATIENT
  Age: 73 Year
  Sex: Female
  Weight: 85.5 kg

DRUGS (22)
  1. METOPROLOL TARTRATE 25MG [Concomitant]
     Active Substance: METOPROLOL TARTRATE
  2. VITAMIN A 8000UNIT [Concomitant]
  3. NEOMYCIN/BACITRACIN/ZN/POLYMYXIN [Concomitant]
  4. LANSOPRAZOLE 15MG [Concomitant]
     Active Substance: LANSOPRAZOLE
  5. CYANOCOBALAMIN 1000MCG [Concomitant]
  6. KEPPRA [Concomitant]
     Active Substance: LEVETIRACETAM
  7. NYSTATIN CREAM [Concomitant]
     Active Substance: NYSTATIN
  8. TYLENOL [Concomitant]
     Active Substance: ACETAMINOPHEN
  9. FUROSEMIDE 20MG [Concomitant]
     Active Substance: FUROSEMIDE
  10. DEXAMETHASONE 4MG [Concomitant]
     Active Substance: DEXAMETHASONE
  11. DIPHENHYDRAMINE 25MG [Concomitant]
     Active Substance: DIPHENHYDRAMINE
  12. XGEVA [Concomitant]
     Active Substance: DENOSUMAB
  13. VITAMIN D 25MCG [Concomitant]
  14. SPIRONOLACTONE 50MG [Concomitant]
     Active Substance: SPIRONOLACTONE
  15. MULTIVITAMIN [Concomitant]
     Active Substance: VITAMINS
  16. ALPRAZOLAM 0.25MG [Concomitant]
     Active Substance: ALPRAZOLAM
  17. ALLOPURINOL 100MG [Concomitant]
     Active Substance: ALLOPURINOL
  18. PENTAMIDINE ISETHIONATE. [Concomitant]
     Active Substance: PENTAMIDINE ISETHIONATE
  19. TEMOZOLOMIDE. [Suspect]
     Active Substance: TEMOZOLOMIDE
     Indication: BRAIN NEOPLASM MALIGNANT
     Dosage: ?          OTHER FREQUENCY:QD MON-FRI;?
     Route: 048
     Dates: start: 20200326, end: 20200410
  20. GABAPENTIN 600MG [Concomitant]
     Active Substance: GABAPENTIN
  21. CITALOPRAM [Concomitant]
     Active Substance: CITALOPRAM HYDROBROMIDE
  22. VITAMIN C 500MG [Concomitant]

REACTIONS (1)
  - Death [None]

NARRATIVE: CASE EVENT DATE: 20200410
